FAERS Safety Report 16253674 (Version 1)
Quarter: 2019Q2

REPORT INFORMATION
  Report Type: Spontaneous
  Country: GB (occurrence: GB)
  Receive Date: 20190430
  Receipt Date: 20190430
  Transmission Date: 20190711
  Serious: Yes (Hospitalization)
  Sender: FDA-Public Use
  Company Number: GB-ACCORD-124192

PATIENT
  Age: 74 Year
  Sex: Male
  Weight: 90 kg

DRUGS (12)
  1. ZANAMIVIR [Concomitant]
     Active Substance: ZANAMIVIR
  2. SYMBICORT [Concomitant]
     Active Substance: BUDESONIDE\FORMOTEROL FUMARATE DIHYDRATE
  3. IMMUNOGLOBULIN HUMAN NORMAL [Concomitant]
     Active Substance: HUMAN IMMUNOGLOBULIN G
     Indication: HYPOGAMMAGLOBULINAEMIA
     Dosage: MONTHLY THERAPY.
  4. ALLOPURINOL. [Concomitant]
     Active Substance: ALLOPURINOL
  5. RAMIPRIL. [Suspect]
     Active Substance: RAMIPRIL
     Indication: HYPERTENSION
     Dosage: NIGHT
     Route: 048
     Dates: end: 20190211
  6. INDAPAMIDE. [Interacting]
     Active Substance: INDAPAMIDE
     Indication: HYPERTENSION
     Dosage: MORNING
     Route: 048
     Dates: end: 20190211
  7. SALBUTAMOL [Concomitant]
     Active Substance: ALBUTEROL
  8. DOXAZOSIN [Concomitant]
     Active Substance: DOXAZOSIN\DOXAZOSIN MESYLATE
     Dosage: HELD.
  9. COTRIMOXAZOLE [Concomitant]
     Active Substance: SULFAMETHOXAZOLE\TRIMETHOPRIM
  10. IBRUTINIB [Interacting]
     Active Substance: IBRUTINIB
     Indication: WALDENSTROM^S MACROGLOBULINAEMIA
     Route: 048
     Dates: start: 20190128, end: 20190211
  11. DILTIAZEM. [Interacting]
     Active Substance: DILTIAZEM
     Indication: PRODUCT USED FOR UNKNOWN INDICATION
  12. INCRUSE ELLIPTA [Concomitant]
     Active Substance: UMECLIDINIUM BROMIDE

REACTIONS (7)
  - Hyponatraemia [Recovered/Resolved]
  - Potentiating drug interaction [Unknown]
  - Constipation [Unknown]
  - Product prescribing error [Unknown]
  - Hypokalaemia [Recovered/Resolved]
  - Pain [Unknown]
  - Peripheral swelling [Unknown]

NARRATIVE: CASE EVENT DATE: 20190204
